FAERS Safety Report 6278830-3 (Version None)
Quarter: 2009Q3

REPORT INFORMATION
  Report Type: 
  Country: None (occurrence: None)
  Receive Date: 20090723
  Receipt Date: 20070507
  Transmission Date: 20100115
  Serious: Yes (Other)
  Sender: FDA-Public Use
  Company Number: US-ASTRAZENECA-2006UW23668

PATIENT
  Age: 44 Year
  Sex: Female
  Weight: 96.6 kg

DRUGS (32)
  1. SEROQUEL [Suspect]
     Indication: BIPOLAR DISORDER
     Route: 048
     Dates: start: 20020901, end: 20030201
  2. SEROQUEL [Suspect]
     Indication: BIPOLAR I DISORDER
     Route: 048
     Dates: start: 20020901, end: 20030201
  3. SEROQUEL [Suspect]
     Indication: ANXIETY
     Route: 048
     Dates: start: 20020901, end: 20030201
  4. SEROQUEL [Suspect]
     Indication: SLEEP DISORDER
     Route: 048
     Dates: start: 20020901, end: 20030201
  5. SEROQUEL [Suspect]
     Dosage: 25MG - 200 MG
     Route: 048
     Dates: start: 20020911
  6. SEROQUEL [Suspect]
     Dosage: 25MG - 200 MG
     Route: 048
     Dates: start: 20020911
  7. SEROQUEL [Suspect]
     Dosage: 25MG - 200 MG
     Route: 048
     Dates: start: 20020911
  8. SEROQUEL [Suspect]
     Dosage: 25MG - 200 MG
     Route: 048
     Dates: start: 20020911
  9. ZYPREXA [Suspect]
     Dates: start: 20020901, end: 20030401
  10. SYMBYAX [Suspect]
     Dates: start: 20021101
  11. ABILIFY [Concomitant]
     Dates: start: 20060114
  12. METHADONE HYDROCHLORIDE [Concomitant]
     Dates: start: 20060220
  13. IBUPROFEN [Concomitant]
  14. CODEINE [Concomitant]
  15. ATIVAN [Concomitant]
  16. PROMETHAZINE [Concomitant]
  17. METFORMIN HCL [Concomitant]
  18. ALPRAZOLAM [Concomitant]
  19. CYCLOBENZAPRINE [Concomitant]
  20. ASPIRIN [Concomitant]
  21. LISINOPRIL [Concomitant]
  22. OMEPRAZOLE [Concomitant]
  23. PROTONIX [Concomitant]
  24. OXYCODONE HCL [Concomitant]
  25. OXAZEPAM [Concomitant]
  26. NOVOLIN R [Concomitant]
  27. LEVOTHROID [Concomitant]
  28. ALBUTEROL [Concomitant]
  29. ATENOLOL [Concomitant]
  30. CEPHALEXIN [Concomitant]
  31. GLIPIZIDE [Concomitant]
  32. NEURONTIN [Concomitant]

REACTIONS (4)
  - BLINDNESS [None]
  - DIABETES MELLITUS [None]
  - DIABETIC KETOACIDOSIS [None]
  - NEUROLEPTIC MALIGNANT SYNDROME [None]
